FAERS Safety Report 7229129-X (Version None)
Quarter: 2011Q1

REPORT INFORMATION
  Report Type: 
  Country: None (occurrence: None)
  Receive Date: 20110117
  Receipt Date: 20110107
  Transmission Date: 20110831
  Serious: Yes (Other)
  Sender: FDA-Public Use
  Company Number: CA-JNJFOC-20100509644

PATIENT
  Sex: Female
  Weight: 79.83 kg

DRUGS (5)
  1. ACETAMINOPHEN [Concomitant]
     Indication: PREMEDICATION
  2. BENADRYL [Concomitant]
     Indication: PREMEDICATION
  3. REMICADE [Suspect]
     Indication: COLITIS ULCERATIVE
     Route: 042
  4. SOLU-CORTEF [Concomitant]
     Indication: PREMEDICATION
  5. REMICADE [Suspect]
     Route: 042

REACTIONS (4)
  - OXYGEN SATURATION DECREASED [None]
  - INFUSION RELATED REACTION [None]
  - RASH [None]
  - PRURITUS [None]
